FAERS Safety Report 6262054-X (Version None)
Quarter: 2009Q3

REPORT INFORMATION
  Report Type: 
  Country: None (occurrence: None)
  Receive Date: 20090707
  Receipt Date: 20090707
  Transmission Date: 20100115
  Serious: No
  Sender: FDA-Public Use
  Company Number: None

PATIENT
  Age: 62 Year
  Sex: Female
  Weight: 70.3075 kg

DRUGS (1)
  1. ARAVA [Suspect]
     Indication: RHEUMATOID ARTHRITIS
     Dosage: 10MGQD

REACTIONS (2)
  - AGEUSIA [None]
  - ANOSMIA [None]
